FAERS Safety Report 6038609-4 (Version None)
Quarter: 2009Q1

REPORT INFORMATION
  Report Type: 
  Country: None (occurrence: None)
  Receive Date: 20090114
  Receipt Date: 20090114
  Transmission Date: 20090719
  Serious: No
  Sender: FDA-Public Use
  Company Number: None

PATIENT
  Sex: Female
  Weight: 62.27 kg

DRUGS (5)
  1. MINOCYCLINE HCL [Suspect]
     Dosage: 100 MG TABLET 100 MG BID ORALD
     Route: 048
     Dates: start: 20080304, end: 20090113
  2. AFRIN [Concomitant]
  3. BENZOYL PEROXIDE [Concomitant]
  4. CLARITIN [Concomitant]
  5. SALINE NASAL DROP [Concomitant]

REACTIONS (1)
  - OLIGOMENORRHOEA [None]
